FAERS Safety Report 18252441 (Version 3)
Quarter: 2020Q4

REPORT INFORMATION
  Report Type: Report from Study
  Country: US (occurrence: US)
  Receive Date: 20200910
  Receipt Date: 20201023
  Transmission Date: 20210113
  Serious: Yes (Hospitalization, Other)
  Sender: FDA-Public Use
  Company Number: US-BRISTOL-MYERS SQUIBB COMPANY-BMS-2020-072304

PATIENT
  Sex: Male
  Weight: 126 kg

DRUGS (1)
  1. APIXABAN [Suspect]
     Active Substance: APIXABAN
     Indication: CEREBROVASCULAR ACCIDENT PROPHYLAXIS
     Dosage: 5 MILLIGRAM, BID
     Route: 048
     Dates: start: 20190304

REACTIONS (5)
  - Parkinson^s disease [Unknown]
  - Contusion [Unknown]
  - Atrial fibrillation [Unknown]
  - Injury [Unknown]
  - Haematoma [Unknown]
